FAERS Safety Report 9782699 (Version 1)
Quarter: 2013Q4

REPORT INFORMATION
  Report Type: Spontaneous
  Country: DE (occurrence: DE)
  Receive Date: 20131226
  Receipt Date: 20131226
  Transmission Date: 20140711
  Serious: Yes (Other)
  Sender: FDA-Public Use
  Company Number: PHHY2013DE151137

PATIENT
  Age: 49 Year
  Sex: Female
  Weight: 72 kg

DRUGS (2)
  1. RASILEZ [Suspect]
     Indication: HYPERTENSION
     Dosage: 150 MG, UNK
  2. RASILEZ [Suspect]
     Dosage: 150 MG, UNK
     Dates: start: 201312

REACTIONS (10)
  - Pancreatitis chronic [Unknown]
  - Pancreatic insufficiency [Unknown]
  - Abdominal pain upper [Unknown]
  - Steatorrhoea [Unknown]
  - Weight decreased [Recovered/Resolved]
  - Headache [Unknown]
  - Swelling face [Unknown]
  - Local swelling [Unknown]
  - Oedema peripheral [Unknown]
  - Blood pressure increased [Unknown]
